FAERS Safety Report 11590299 (Version 1)
Quarter: 2015Q4

REPORT INFORMATION
  Report Type: Spontaneous
  Country: US (occurrence: US)
  Receive Date: 20151002
  Receipt Date: 20151002
  Transmission Date: 20160304
  Serious: Yes (Other)
  Sender: FDA-Public Use
  Company Number: US-ASTRAZENECA-2015SE93078

PATIENT
  Sex: Female
  Weight: 95.3 kg

DRUGS (4)
  1. KOMBIGLYZE XR [Suspect]
     Active Substance: METFORMIN HYDROCHLORIDE\SAXAGLIPTIN HYDROCHLORIDE
     Route: 048
  2. PERCOCET [Concomitant]
     Active Substance: ACETAMINOPHEN\OXYCODONE HYDROCHLORIDE
     Dosage: 10MG 4 TIMES A DAY
  3. MORPHINE [Concomitant]
     Active Substance: MORPHINE
     Dosage: ER 15MG
  4. SOMA [Concomitant]
     Active Substance: CARISOPRODOL
     Dosage: 350MG 3 TIMES A DAY,

REACTIONS (5)
  - Depression [Unknown]
  - Anxiety [Unknown]
  - Gestational diabetes [Unknown]
  - Intervertebral disc degeneration [Unknown]
  - Drug dose omission [Unknown]
